FAERS Safety Report 13631218 (Version 1)
Quarter: 2017Q2

REPORT INFORMATION
  Report Type: Spontaneous
  Country: US (occurrence: US)
  Receive Date: 20170531
  Receipt Date: 20170531
  Transmission Date: 20170830
  Serious: No
  Sender: FDA-Public Use
  Company Number: US-ASTELLAS-1362872

PATIENT
  Sex: Female

DRUGS (11)
  1. DIGOXIN. [Concomitant]
     Active Substance: DIGOXIN
  2. FOLIC ACID. [Concomitant]
     Active Substance: FOLIC ACID
  3. LORAZEPAM. [Concomitant]
     Active Substance: LORAZEPAM
  4. TARCEVA [Suspect]
     Active Substance: ERLOTINIB HYDROCHLORIDE
     Indication: LUNG NEOPLASM MALIGNANT
     Route: 048
     Dates: start: 20131025, end: 20140307
  5. VITAMIN D3 [Concomitant]
     Active Substance: CHOLECALCIFEROL
  6. PROCHLORPERAZINE. [Concomitant]
     Active Substance: PROCHLORPERAZINE
  7. DILTIAZEM. [Concomitant]
     Active Substance: DILTIAZEM
  8. DEXAMETHASONE. [Concomitant]
     Active Substance: DEXAMETHASONE
  9. WARFARIN [Concomitant]
     Active Substance: WARFARIN
  10. ADVAIR HFA [Concomitant]
     Active Substance: FLUTICASONE PROPIONATE\SALMETEROL XINAFOATE
  11. CHLORTHALIDONE. [Concomitant]
     Active Substance: CHLORTHALIDONE

REACTIONS (1)
  - Drug effect decreased [Unknown]
